FAERS Safety Report 5376741-9 (Version None)
Quarter: 2007Q3

REPORT INFORMATION
  Report Type: 
  Country: None (occurrence: None)
  Receive Date: 20070703
  Receipt Date: 20070626
  Transmission Date: 20080115
  Serious: Yes (Death)
  Sender: FDA-Public Use
  Company Number: PHEH2007US08955

PATIENT
  Age: 34 Year
  Sex: Male

DRUGS (7)
  1. EXJADE [Suspect]
     Indication: IRON OVERLOAD
     Dosage: 1250 MG, QD
     Route: 048
     Dates: start: 20061208
  2. OXYCONTIN [Concomitant]
  3. OXYCODONE HCL [Concomitant]
  4. PROTONIX [Concomitant]
  5. PROZAC [Concomitant]
  6. PHENERGAN HCL [Concomitant]
  7. FOLIC ACID [Concomitant]

REACTIONS (2)
  - COMPLETED SUICIDE [None]
  - WHITE BLOOD CELL COUNT INCREASED [None]
